FAERS Safety Report 7335151-5 (Version None)
Quarter: 2011Q1

REPORT INFORMATION
  Report Type: 
  Country: None (occurrence: None)
  Receive Date: 20110307
  Receipt Date: 20110228
  Transmission Date: 20110831
  Serious: Yes (Other)
  Sender: FDA-Public Use
  Company Number: US-JNJFOC-20110207918

PATIENT
  Age: 49 Year
  Sex: Female
  Weight: 50.8 kg

DRUGS (4)
  1. DEMULEN UNSPECIFIED [Concomitant]
     Indication: CONTRACEPTION
     Route: 061
  2. ROGAINE FOR MEN EXTRA STRENGTH [Suspect]
     Route: 061
  3. ROGAINE FOR MEN EXTRA STRENGTH [Suspect]
     Indication: ALOPECIA
     Dosage: HALF CAPFUL
     Route: 061
  4. SPIRONOLACTONE [Concomitant]
     Indication: HAIR DISORDER
     Route: 065

REACTIONS (5)
  - INSOMNIA [None]
  - HEART RATE IRREGULAR [None]
  - PALPITATIONS [None]
  - HEADACHE [None]
  - WRONG DRUG ADMINISTERED [None]
